FAERS Safety Report 7651456-2 (Version None)
Quarter: 2011Q3

REPORT INFORMATION
  Report Type: 
  Country: None (occurrence: None)
  Receive Date: 20110802
  Receipt Date: 20110727
  Transmission Date: 20111222
  Serious: Yes (Death)
  Sender: FDA-Public Use
  Company Number: PHBS2002JP11664

PATIENT
  Sex: Male
  Weight: 76 kg

DRUGS (4)
  1. SANDIMMUNE [Suspect]
     Indication: PSORIASIS
     Dosage: 250 MG/DAY
     Route: 065
     Dates: start: 19930116
  2. TIGASON [Suspect]
     Indication: ERYTHRODERMIC PSORIASIS
     Dosage: 50 MG, UNK
     Route: 048
     Dates: start: 19840101
  3. SANDIMMUNE [Suspect]
     Dosage: 350 MG/DAY
     Route: 065
     Dates: end: 19950501
  4. METHOTREXATE [Suspect]
     Dosage: 7.5 MG, QW
     Route: 048
     Dates: start: 19830101

REACTIONS (8)
  - LYMPHADENOPATHY [None]
  - MALIGNANT MELANOMA [None]
  - METASTASES TO CENTRAL NERVOUS SYSTEM [None]
  - RASH PAPULAR [None]
  - PUNCTATE KERATITIS [None]
  - METASTASES TO LUNG [None]
  - METASTASES TO BONE [None]
  - CONDITION AGGRAVATED [None]
